FAERS Safety Report 8816300 (Version 1)
Quarter: 2012Q4

REPORT INFORMATION
  Report Type: Spontaneous
  Country: US (occurrence: None)
  Receive Date: 20120927
  Receipt Date: 20120927
  Transmission Date: 20130627
  Serious: Yes (Hospitalization)
  Sender: FDA-Public Use
  Company Number: None

PATIENT
  Age: 4 Year
  Sex: Male
  Weight: 14.97 kg

DRUGS (1)
  1. AMOXICILLIN [Suspect]
     Indication: SINUS INFECTION
     Dates: start: 20120921, end: 20120924

REACTIONS (2)
  - Convulsion [None]
  - Product quality issue [None]
